FAERS Safety Report 8235550-3 (Version None)
Quarter: 2012Q1

REPORT INFORMATION
  Report Type: 
  Country: None (occurrence: None)
  Receive Date: 20120323
  Receipt Date: 20120312
  Transmission Date: 20120608
  Serious: Yes (Other)
  Sender: FDA-Public Use
  Company Number: JPI-P-020306

PATIENT
  Age: 66 Year
  Sex: Male

DRUGS (2)
  1. XYREM [Suspect]
     Indication: INSOMNIA
     Dosage: 6 GM(3 GM,2 IN 1 D),ORAL ; ORAL ; 9 GM (4.5 GM,2 IN 1 D),ORAL
     Route: 048
     Dates: start: 20060607
  2. XYREM [Suspect]
     Indication: INSOMNIA
     Dosage: 6 GM(3 GM,2 IN 1 D),ORAL ; ORAL ; 9 GM (4.5 GM,2 IN 1 D),ORAL
     Route: 048
     Dates: start: 20051208

REACTIONS (2)
  - ACCIDENT [None]
  - KNEE OPERATION [None]
